FAERS Safety Report 21498692 (Version 1)
Quarter: 2022Q4

REPORT INFORMATION
  Report Type: Spontaneous
  Country: CZ (occurrence: CZ)
  Receive Date: 20221024
  Receipt Date: 20221024
  Transmission Date: 20230112
  Serious: Yes (Hospitalization, Other)
  Sender: FDA-Public Use
  Company Number: CZ-NOVARTISPH-NVSC2022CZ237693

PATIENT
  Age: 78 Year
  Sex: Male

DRUGS (6)
  1. ZOLPIDEM [Suspect]
     Active Substance: ZOLPIDEM TARTRATE
     Indication: Insomnia
     Dosage: 20 MG, QD
     Route: 065
     Dates: start: 2021, end: 2021
  2. ZOLPIDEM [Suspect]
     Active Substance: ZOLPIDEM TARTRATE
     Dosage: 10 MG, QD, PER NIGHT
     Route: 065
     Dates: start: 2021
  3. ALCOHOL [Suspect]
     Active Substance: ALCOHOL
     Indication: Product used for unknown indication
     Dosage: UNK
     Route: 065
  4. MELPERONE [Concomitant]
     Active Substance: MELPERONE
     Indication: Sleep disorder therapy
     Dosage: 25 MG, QD, EVENING DOSE
     Route: 065
     Dates: start: 2021, end: 2021
  5. MELPERONE [Concomitant]
     Active Substance: MELPERONE
     Dosage: 50 MG
     Route: 065
     Dates: start: 2021
  6. DIAZEPAM [Concomitant]
     Active Substance: DIAZEPAM
     Indication: Product used for unknown indication
     Dosage: OUTOF20MG,10MG ADMNSTR IN 1 EVENG DOSE
     Route: 065
     Dates: start: 2021

REACTIONS (3)
  - Drug dependence [Unknown]
  - Drug abuse [Unknown]
  - Off label use [Unknown]

NARRATIVE: CASE EVENT DATE: 20210101
